FAERS Safety Report 17850636 (Version 1)
Quarter: 2020Q2

REPORT INFORMATION
  Report Type: Spontaneous
  Country: CA (occurrence: CA)
  Receive Date: 20200602
  Receipt Date: 20200602
  Transmission Date: 20200714
  Serious: Yes (Other)
  Sender: FDA-Public Use
  Company Number: CA-PFIZER INC-2019273418

PATIENT
  Age: 44 Year
  Sex: Male

DRUGS (7)
  1. FOLIC ACID. [Concomitant]
     Active Substance: FOLIC ACID
     Dosage: 5 MG 6 DAY PER WEEKS
  2. ADVIL LIQUI-GELS [Concomitant]
     Active Substance: IBUPROFEN
     Dosage: UNK, Q4H DAILY
  3. XELJANZ [Concomitant]
     Active Substance: TOFACITINIB CITRATE
     Indication: RHEUMATOID ARTHRITIS
     Dosage: 5 MG, 2X/DAY
     Route: 048
     Dates: start: 20191211
  4. VITAMIN B12 [Concomitant]
     Active Substance: CYANOCOBALAMIN
     Dosage: 1000 UG
  5. TYLENOL EXTRA STRENGTH [Concomitant]
     Active Substance: ACETAMINOPHEN
     Dosage: 2 DF, Q4H DAILY
  6. METHOTREXATE SODIUM. [Suspect]
     Active Substance: METHOTREXATE SODIUM
     Indication: RHEUMATOID ARTHRITIS
     Dosage: 25 MG, WEEKLY (2.5 MG X 10 TABS)
     Route: 048
  7. TOFACITINIB [Concomitant]
     Active Substance: TOFACITINIB
     Dosage: UNK
     Dates: start: 202001

REACTIONS (3)
  - Drug ineffective [Recovering/Resolving]
  - Bronchial hyperreactivity [Unknown]
  - Gastric mucosal hypertrophy [Unknown]

NARRATIVE: CASE EVENT DATE: 2015
